FAERS Safety Report 10167232 (Version 2)
Quarter: 2014Q2

REPORT INFORMATION
  Report Type: Spontaneous
  Country: US (occurrence: US)
  Receive Date: 20140512
  Receipt Date: 20140606
  Transmission Date: 20141212
  Serious: No
  Sender: FDA-Public Use
  Company Number: US-PFIZER INC-2014129305

PATIENT
  Age: 69 Year
  Sex: Male
  Weight: 95.24 kg

DRUGS (4)
  1. CELEBREX [Suspect]
     Indication: PAIN
     Dosage: 200 MG, 1X/DAY
     Route: 048
     Dates: start: 20140417, end: 20140503
  2. CELEBREX [Suspect]
     Indication: SWELLING
  3. LISINOPRIL W/HYDROCHLOROTHIAZIDE [Concomitant]
     Indication: HYPERTENSION
     Dosage: 12.5/10 MG
  4. LOVASTATIN [Concomitant]
     Indication: BLOOD CHOLESTEROL ABNORMAL
     Dosage: 40 MG, DAILY

REACTIONS (4)
  - Anxiety [Unknown]
  - Personality change [Unknown]
  - Disturbance in attention [Unknown]
  - Nervousness [Unknown]
